FAERS Safety Report 15598407 (Version 1)
Quarter: 2018Q4

REPORT INFORMATION
  Report Type: Spontaneous
  Country: US (occurrence: US)
  Receive Date: 20181107
  Receipt Date: 20181107
  Transmission Date: 20190205
  Serious: No
  Sender: FDA-Public Use
  Company Number: None

PATIENT
  Age: 71 Year
  Sex: Male
  Weight: 95.25 kg

DRUGS (1)
  1. ULORIC [Suspect]
     Active Substance: FEBUXOSTAT
     Indication: GOUT
     Dosage: ?          QUANTITY:1 A DAY;?
     Route: 048
     Dates: start: 20180612, end: 20180810

REACTIONS (10)
  - Urticaria [None]
  - Swollen tongue [None]
  - Dyspnoea [None]
  - Dizziness [None]
  - Mouth swelling [None]
  - Headache [None]
  - Rash [None]
  - Adverse event [None]
  - Dysphagia [None]
  - Pharyngeal oedema [None]

NARRATIVE: CASE EVENT DATE: 20180630
